FAERS Safety Report 6973609-9 (Version None)
Quarter: 2010Q3

REPORT INFORMATION
  Report Type: 
  Country: None (occurrence: None)
  Receive Date: 20100909
  Receipt Date: 20100831
  Transmission Date: 20110219
  Serious: Yes (Other)
  Sender: FDA-Public Use
  Company Number: US-AMGEN-QUU435101

PATIENT
  Age: 75 Year
  Sex: Male

DRUGS (8)
  1. EPOGEN [Suspect]
     Indication: DIALYSIS
     Dates: start: 20060801
  2. LASIX [Concomitant]
  3. IRON [Concomitant]
  4. METAMUCIL-2 [Concomitant]
  5. INSULIN [Concomitant]
  6. MULTI-VITAMINS [Concomitant]
  7. TUMS [Concomitant]
  8. HEPARIN [Concomitant]

REACTIONS (2)
  - HAEMOGLOBIN DECREASED [None]
  - THERAPEUTIC RESPONSE DECREASED [None]
